FAERS Safety Report 22160286 (Version 1)
Quarter: 2023Q1

REPORT INFORMATION
  Report Type: Spontaneous
  Country: US (occurrence: None)
  Receive Date: 20230330
  Receipt Date: 20230330
  Transmission Date: 20230418
  Serious: Yes (Other)
  Sender: FDA-Public Use
  Company Number: None

PATIENT
  Age: 4 Year
  Sex: Male
  Weight: 16.65 kg

DRUGS (3)
  1. AMOXICILLIN [Suspect]
     Active Substance: AMOXICILLIN
     Indication: Ear infection
     Dosage: OTHER QUANTITY : 9.5 ML;?FREQUENCY : TWICE A DAY;?
     Route: 048
     Dates: start: 20230304, end: 20230313
  2. CHILDREN^S MULTIVITAMIN [Concomitant]
  3. omega 3 supplement [Concomitant]

REACTIONS (5)
  - Urticaria [None]
  - Joint swelling [None]
  - Joint swelling [None]
  - Joint swelling [None]
  - Serum sickness-like reaction [None]

NARRATIVE: CASE EVENT DATE: 20230315
